FAERS Safety Report 19442271 (Version 1)
Quarter: 2021Q2

REPORT INFORMATION
  Report Type: Other
  Country: US (occurrence: US)
  Receive Date: 20210621
  Receipt Date: 20210621
  Transmission Date: 20210717
  Serious: No
  Sender: FDA-Public Use
  Company Number: US-ACORDA-ACO_168676_2021

PATIENT
  Age: 65 Year
  Sex: Female

DRUGS (6)
  1. PRAMIPEXOLE. [Concomitant]
     Active Substance: PRAMIPEXOLE
     Indication: PRODUCT USED FOR UNKNOWN INDICATION
     Dosage: 1 PILL 1X/DAY
     Route: 065
  2. INBRIJA [Suspect]
     Active Substance: LEVODOPA
     Indication: PARKINSON^S DISEASE
     Dosage: 84 MILLIGRAM, PRN (2 CAPSULES OF 42MG AS NEEDED) NOT TO EXCEED 2 DOSES A DAY
     Route: 048
     Dates: start: 20210408
  3. COMTAN [Concomitant]
     Active Substance: ENTACAPONE
     Indication: PRODUCT USED FOR UNKNOWN INDICATION
     Dosage: 1 PILL 2X/DAY
     Route: 048
  4. AZILECT [Concomitant]
     Active Substance: RASAGILINE MESYLATE
     Indication: PRODUCT USED FOR UNKNOWN INDICATION
  5. INBRIJA [Suspect]
     Active Substance: LEVODOPA
     Indication: ON AND OFF PHENOMENON
  6. CARBIDOPA/LEVODOPA [Concomitant]
     Active Substance: CARBIDOPA\LEVODOPA
     Indication: PRODUCT USED FOR UNKNOWN INDICATION
     Dosage: 25/100MG: 2.5 PILLS 5X/DAY
     Route: 065

REACTIONS (3)
  - Cough [Not Recovered/Not Resolved]
  - Product communication issue [Unknown]
  - Device use issue [Unknown]

NARRATIVE: CASE EVENT DATE: 20210408
